FAERS Safety Report 6976906-6 (Version None)
Quarter: 2010Q3

REPORT INFORMATION
  Report Type: 
  Country: None (occurrence: None)
  Receive Date: 20100910
  Receipt Date: 20090430
  Transmission Date: 20110219
  Serious: No
  Sender: FDA-Public Use
  Company Number: US-WYE-H09180909

PATIENT
  Sex: Male
  Weight: 116.22 kg

DRUGS (2)
  1. PRISTIQ [Suspect]
     Indication: DEPRESSION
     Route: 048
     Dates: start: 20090426
  2. METOPROLOL TARTRATE [Concomitant]

REACTIONS (1)
  - SOMNOLENCE [None]
